FAERS Safety Report 8386678-9 (Version None)
Quarter: 2012Q2

REPORT INFORMATION
  Report Type: 
  Country: None (occurrence: None)
  Receive Date: 20120525
  Receipt Date: 20120521
  Transmission Date: 20120825
  Serious: Yes (Hospitalization)
  Sender: FDA-Public Use
  Company Number: IT-SANOFI-AVENTIS-2012SA034659

PATIENT
  Age: 40 Year
  Sex: Female

DRUGS (3)
  1. FERROUS CARBONATE [Suspect]
     Indication: IRON DEFICIENCY ANAEMIA
     Dosage: FORM: SOLUTION FOR ORAL AND INTRAVENOUS USE, STRENGTH; 62.5 MG/ 5 ML
     Route: 041
     Dates: start: 20120330, end: 20120330
  2. LEVOTHYROXINE SODIUM [Concomitant]
     Indication: HYPOTHYROIDISM
     Route: 048
  3. LEUCOVORIN CALCIUM [Concomitant]
     Indication: IRON DEFICIENCY ANAEMIA
     Route: 048

REACTIONS (5)
  - URTICARIA [None]
  - SKIN LESION [None]
  - MOVEMENT DISORDER [None]
  - MUSCLE CONTRACTURE [None]
  - SYNCOPE [None]
